FAERS Safety Report 15398510 (Version 2)
Quarter: 2018Q4

REPORT INFORMATION
  Report Type: Spontaneous
  Country: DE (occurrence: DE)
  Receive Date: 20180918
  Receipt Date: 20181002
  Transmission Date: 20190204
  Serious: Yes (Congenital Anomaly)
  Sender: FDA-Public Use
  Company Number: PHHY2018DE095036

PATIENT

DRUGS (1)
  1. TELMISARTAN. [Suspect]
     Active Substance: TELMISARTAN
     Indication: FOETAL EXPOSURE DURING PREGNANCY
     Dosage: UNK
     Route: 064

REACTIONS (3)
  - Talipes [Unknown]
  - Foetal exposure during pregnancy [Unknown]
  - Accidental exposure to product [Unknown]
